FAERS Safety Report 6474157-5 (Version None)
Quarter: 2009Q4

REPORT INFORMATION
  Report Type: 
  Country: None (occurrence: None)
  Receive Date: 20091124
  Receipt Date: 20091118
  Transmission Date: 20100525
  Serious: Yes (Death)
  Sender: FDA-Public Use
  Company Number: THYM-1001304

PATIENT
  Age: 78 Year
  Sex: Female

DRUGS (14)
  1. THYMOGLOBULIN [Suspect]
     Indication: APLASTIC ANAEMIA
     Dosage: 175 MG, QD, INTRAVENOUS
     Route: 042
     Dates: start: 20090928, end: 20091002
  2. ACICLOVIR (ACICLOVIR SODIUM) [Concomitant]
  3. ALFACALCIDOL (ALFACALCIDOL) [Concomitant]
  4. CALCICHEW D3 (CALCIUM CARBONATE, COLECALCIFEROL) [Concomitant]
  5. CHLORHEXIDINE (CHLORHEIDINE) [Concomitant]
  6. CIPROFLOXACIN [Concomitant]
  7. GABAPENTIN [Concomitant]
  8. ITRACONAZOLE [Concomitant]
  9. LANSOPRAZOLE [Concomitant]
  10. NEORAL [Concomitant]
  11. ACETAMINOPHEN [Concomitant]
  12. PREDNISOLONE ACETATE [Concomitant]
  13. SIMVASTATIN [Concomitant]
  14. TELMISARTAN [Concomitant]

REACTIONS (2)
  - FALL [None]
  - GUILLAIN-BARRE SYNDROME [None]
